FAERS Safety Report 14367621 (Version 1)
Quarter: 2018Q1

REPORT INFORMATION
  Report Type: Spontaneous
  Country: US (occurrence: US)
  Receive Date: 20180105
  Receipt Date: 20180105
  Transmission Date: 20180509
  Serious: Yes (Death)
  Sender: FDA-Public Use
  Company Number: None

PATIENT
  Age: 49 Year
  Sex: Female
  Weight: 66.9 kg

DRUGS (1)
  1. PEMBROLIZUMAB. [Suspect]
     Active Substance: PEMBROLIZUMAB
     Indication: NEUROENDOCRINE CARCINOMA
     Dosage: 1200 MG Q 21 DAYS IV
     Route: 042
     Dates: start: 20171013

REACTIONS (2)
  - Performance status decreased [None]
  - Malignant neoplasm progression [None]

NARRATIVE: CASE EVENT DATE: 20171214
